FAERS Safety Report 9714506 (Version 1)
Quarter: 2013Q4

REPORT INFORMATION
  Report Type: Spontaneous
  Country: US (occurrence: US)
  Receive Date: 20131126
  Receipt Date: 20131126
  Transmission Date: 20140711
  Serious: No
  Sender: FDA-Public Use
  Company Number: US-BIOGENIDEC-2013BI087384

PATIENT
  Age: 34 Year
  Sex: Female
  Weight: 45 kg

DRUGS (22)
  1. TECFIDERA [Suspect]
     Indication: PRODUCT USED FOR UNKNOWN INDICATION
     Dates: start: 201305
  2. TECFIDERA [Suspect]
     Indication: PRODUCT USED FOR UNKNOWN INDICATION
     Route: 048
     Dates: end: 20130831
  3. TECFIDERA [Suspect]
     Indication: PRODUCT USED FOR UNKNOWN INDICATION
     Route: 048
  4. OMEGA 3-6-9 [Concomitant]
     Route: 048
  5. SALMON OIL [Concomitant]
     Route: 048
  6. COD LIVER OIL [Concomitant]
     Route: 048
  7. VITAMIN D [Concomitant]
     Route: 048
  8. VITAMIN B 50 COMPLEX [Concomitant]
     Route: 048
  9. MULTIVIT [Concomitant]
     Route: 048
  10. OXYCODONE [Concomitant]
     Route: 048
  11. SOLU MEDROL [Concomitant]
     Route: 058
  12. NEURONTIN [Concomitant]
     Route: 048
  13. BACLOFEN [Concomitant]
     Route: 048
  14. VANTIN [Concomitant]
     Route: 048
  15. ENABLEX [Concomitant]
     Route: 048
  16. NOTRIPTYLINE [Concomitant]
     Route: 048
  17. ZOLOFT [Concomitant]
     Route: 048
  18. XANAX [Concomitant]
     Route: 048
  19. ADDERALL [Concomitant]
     Route: 048
  20. WELLBUTRIN [Concomitant]
  21. ADDERALL [Concomitant]
  22. MULTITAB FOR HER [Concomitant]

REACTIONS (9)
  - Rhinorrhoea [Recovered/Resolved]
  - Constipation [Unknown]
  - Body temperature increased [Recovered/Resolved]
  - Hypoaesthesia [Unknown]
  - Depression [Unknown]
  - Abdominal pain [Unknown]
  - Flushing [Recovered/Resolved]
  - Rash erythematous [Recovered/Resolved]
  - Abdominal discomfort [Unknown]
